FAERS Safety Report 8532044 (Version 2)
Quarter: 2012Q4

REPORT INFORMATION
  Report Type: 
  Country: US (occurrence: US)
  Receive Date: 20120426
  Receipt Date: 20121003
  Transmission Date: 20130627
  Serious: Yes (Other)
  Sender: FDA-Public Use
  Company Number: US-ROCHE-1062150

PATIENT
  Age: 26 None
  Sex: Male

DRUGS (2)
  1. ACCUTANE [Suspect]
     Indication: PRODUCT USED FOR UNKNOWN INDICATION
     Route: 065
     Dates: start: 1996, end: 1997
  2. ACCUTANE [Suspect]
     Route: 065
     Dates: start: 20070101, end: 20081231

REACTIONS (5)
  - Colitis ulcerative [Unknown]
  - Pancreatitis acute [Unknown]
  - Inflammatory bowel disease [Unknown]
  - Depression [Unknown]
  - Injury [Unknown]
